FAERS Safety Report 24689976 (Version 1)
Quarter: 2024Q4

REPORT INFORMATION
  Report Type: Spontaneous
  Country: BR (occurrence: BR)
  Receive Date: 20241203
  Receipt Date: 20241203
  Transmission Date: 20250115
  Serious: Yes (Other)
  Sender: DR REDDYS
  Company Number: BR-RDY-LIT/BRA/24/0017545

PATIENT
  Age: 55 Year
  Sex: Female

DRUGS (1)
  1. SUNITINIB [Suspect]
     Active Substance: SUNITINIB
     Indication: Gastrointestinal stromal tumour
     Route: 048
     Dates: start: 202309

REACTIONS (1)
  - Glomerulonephritis membranous [Recovered/Resolved]
